FAERS Safety Report 18304510 (Version 1)
Quarter: 2020Q3

REPORT INFORMATION
  Report Type: Spontaneous
  Country: US (occurrence: US)
  Receive Date: 20200923
  Receipt Date: 20200923
  Transmission Date: 20201103
  Serious: No
  Sender: FDA-Public Use
  Company Number: US-PFIZER INC-2020363796

PATIENT
  Age: 32 Year
  Sex: Female
  Weight: 149.69 kg

DRUGS (3)
  1. TEMODAR [Concomitant]
     Active Substance: TEMOZOLOMIDE
     Dosage: 250 MG, 1X/DAY FOR THE FIRST 5 DAYS OF THE MONTH
     Route: 048
  2. NEURONTIN [Suspect]
     Active Substance: GABAPENTIN
     Indication: HEADACHE
     Dosage: 600 MG, 3X/DAY
     Route: 048
     Dates: start: 201905
  3. TEMODAR [Concomitant]
     Active Substance: TEMOZOLOMIDE
     Dosage: 250 MG, 1X/DAY FOR THE FIRST 5 DAYS OF THE MONTH
     Route: 048

REACTIONS (5)
  - Off label use [Unknown]
  - Product use in unapproved indication [Unknown]
  - Feeling abnormal [Unknown]
  - Drug effective for unapproved indication [Unknown]
  - Nasopharyngitis [Unknown]

NARRATIVE: CASE EVENT DATE: 201905
